FAERS Safety Report 8519578-1 (Version None)
Quarter: 2012Q3

REPORT INFORMATION
  Report Type: 
  Country: None (occurrence: None)
  Receive Date: 20120718
  Receipt Date: 20120702
  Transmission Date: 20120928
  Serious: No
  Sender: FDA-Public Use
  Company Number: US-009507513-1207USA000266

PATIENT

DRUGS (1)
  1. COSOPT [Suspect]
     Dosage: 2 DROPS, BID
     Route: 047
     Dates: start: 20120101

REACTIONS (1)
  - DRUG INEFFECTIVE [None]
